FAERS Safety Report 4866616-3 (Version None)
Quarter: 2005Q4

REPORT INFORMATION
  Report Type: 
  Country: None (occurrence: None)
  Receive Date: 20051221
  Receipt Date: 20051212
  Transmission Date: 20060501
  Serious: Yes (Other)
  Sender: FDA-Public Use
  Company Number: 2005098716

PATIENT
  Age: 69 Year
  Sex: Male
  Weight: 103.4201 kg

DRUGS (6)
  1. CELEBREX [Suspect]
     Indication: PAIN
     Dosage: 200 MG (100 MG, 2 IN 1 D), ORAL
     Route: 048
     Dates: start: 19980101
  2. ALL OTHER THERAPEUTIC PRODUCTS (ALL OTHER THERAPEUTIC PRODUCTS) [Suspect]
     Indication: ILL-DEFINED DISORDER
  3. ASPIRIN [Concomitant]
  4. GARLIC [Concomitant]
  5. VITAMIN E [Concomitant]
  6. OPIAT (ATROPINE SULFATE, OPIUM ALKALOIDS TOTAL) [Concomitant]

REACTIONS (11)
  - ANAEMIA [None]
  - ARTHROPATHY [None]
  - CARDIAC VALVE DISEASE [None]
  - CHEST PAIN [None]
  - DISEASE RECURRENCE [None]
  - DYSPNOEA [None]
  - HAEMORRHAGE [None]
  - INCREASED TENDENCY TO BRUISE [None]
  - INFLAMMATION [None]
  - PAIN [None]
  - SURGICAL PROCEDURE REPEATED [None]
